FAERS Safety Report 13162634 (Version 2)
Quarter: 2017Q1

REPORT INFORMATION
  Report Type: Spontaneous
  Country: JP (occurrence: JP)
  Receive Date: 20170130
  Receipt Date: 20170222
  Transmission Date: 20170428
  Serious: Yes (Hospitalization)
  Sender: FDA-Public Use
  Company Number: JP-PFIZER INC-2017030320

PATIENT
  Age: 80 Year
  Sex: Male

DRUGS (1)
  1. CABASER [Suspect]
     Active Substance: CABERGOLINE
     Dosage: UNK

REACTIONS (2)
  - Tricuspid valve incompetence [Unknown]
  - Cardiac failure [Unknown]
